FAERS Safety Report 9891993 (Version 1)
Quarter: 2014Q1

REPORT INFORMATION
  Report Type: Spontaneous
  Country: US (occurrence: US)
  Receive Date: 20140212
  Receipt Date: 20140212
  Transmission Date: 20141002
  Serious: No
  Sender: FDA-Public Use
  Company Number: US-BAYER-2014-020280

PATIENT
  Age: 80 Year
  Sex: Male
  Weight: 85.26 kg

DRUGS (7)
  1. ALEVE TABLET [Suspect]
     Indication: TOOTHACHE
     Dosage: 1 DF, QD
     Route: 048
     Dates: start: 20140204, end: 20140205
  2. BAYER ASPIRIN REGIMEN ADULT LOW STRENGTH [Concomitant]
     Dosage: 1 DF, QD
     Route: 048
  3. GLIMEPIRIDE [Concomitant]
  4. TOPROL [Concomitant]
  5. LIPITOR [Concomitant]
  6. AMITRIPTYLINE [Concomitant]
  7. PROBENECID [Concomitant]

REACTIONS (2)
  - Blood glucose increased [Not Recovered/Not Resolved]
  - Blood glucose increased [Not Recovered/Not Resolved]
